FAERS Safety Report 14412864 (Version 2)
Quarter: 2018Q1

REPORT INFORMATION
  Report Type: Spontaneous
  Country: JP (occurrence: JP)
  Receive Date: 20180119
  Receipt Date: 20180205
  Transmission Date: 20180509
  Serious: Yes (Death, Other)
  Sender: FDA-Public Use
  Company Number: JP-FERRINGPH-2018FE00188

PATIENT

DRUGS (2)
  1. LEUPLIN [Concomitant]
     Active Substance: LEUPROLIDE ACETATE
  2. GONAX [Suspect]
     Active Substance: DEGARELIX
     Indication: PROSTATE CANCER
     Dosage: 80 MG, MONTHLY
     Route: 058

REACTIONS (2)
  - Death [Fatal]
  - Prostate cancer [Fatal]
